FAERS Safety Report 17680413 (Version 3)
Quarter: 2020Q2

REPORT INFORMATION
  Report Type: Report from Study
  Country: DK (occurrence: DK)
  Receive Date: 20200417
  Receipt Date: 20200513
  Transmission Date: 20200714
  Serious: Yes (Hospitalization)
  Sender: FDA-Public Use
  Company Number: DK-ROCHE-2580125

PATIENT
  Age: 72 Year
  Sex: Male
  Weight: 83.5 kg

DRUGS (7)
  1. RO6874281 (FAP IL2V MAB) [Suspect]
     Active Substance: SIMLUKAFUSP ALFA
     Indication: RENAL CELL CARCINOMA
     Dosage: DATE OF MOST RECENT DOSE (5 MG) OF PRIOR TO SAE ONSET: 30/JUL/2019
     Route: 042
     Dates: start: 20180917
  2. BEVACIZUMAB. [Suspect]
     Active Substance: BEVACIZUMAB
     Indication: RENAL CELL CARCINOMA
     Dosage: DATE OF MOST RECENT DOSE (1230 MG) OF BEVACIZUMAB PRIOR TO SAE ONSET: 29/AUG/2019
     Route: 042
     Dates: start: 20180917
  3. PANTOPRAZOLE [Concomitant]
     Active Substance: PANTOPRAZOLE
     Route: 065
     Dates: start: 20190729
  4. CALCICHEW-D3 FORTE [Concomitant]
     Active Substance: CALCIUM\CHOLECALCIFEROL
     Route: 065
     Dates: start: 20191223
  5. LIXIANA [Concomitant]
     Active Substance: EDOXABAN TOSYLATE
     Route: 065
     Dates: start: 20190912
  6. SYMBICORT [Concomitant]
     Active Substance: BUDESONIDE\FORMOTEROL FUMARATE DIHYDRATE
     Dosage: 1 INHALATION
     Route: 065
     Dates: start: 20181204
  7. ATEZOLIZUMAB. [Suspect]
     Active Substance: ATEZOLIZUMAB
     Indication: RENAL CELL CARCINOMA
     Dosage: DATE OF MOST RECENT DOSE (1200 MG) OF ATEZOLIZUMAB: 30/JUL/2019
     Route: 042
     Dates: start: 20180917

REACTIONS (1)
  - Myocarditis [Not Recovered/Not Resolved]

NARRATIVE: CASE EVENT DATE: 20200402
